FAERS Safety Report 18574254 (Version 1)
Quarter: 2020Q4

REPORT INFORMATION
  Report Type: Spontaneous
  Country: US (occurrence: US)
  Receive Date: 20201203
  Receipt Date: 20201203
  Transmission Date: 20210114
  Serious: Yes (Life-Threatening, Hospitalization, Other)
  Sender: FDA-Public Use
  Company Number: US-DRREDDYS-USA/USA/20/0129687

PATIENT
  Age: 54 Year
  Sex: Male

DRUGS (2)
  1. AMIODARONE HYDROCHLORIDE. [Suspect]
     Active Substance: AMIODARONE HYDROCHLORIDE
     Indication: VENTRICULAR ARRHYTHMIA
  2. AMIODARONE HYDROCHLORIDE. [Suspect]
     Active Substance: AMIODARONE HYDROCHLORIDE

REACTIONS (6)
  - Device inappropriate shock delivery [Unknown]
  - Ventricular fibrillation [Unknown]
  - Thyroid disorder [Unknown]
  - Ventricular tachycardia [Unknown]
  - Condition aggravated [Unknown]
  - Hyperthyroidism [Recovered/Resolved]
